FAERS Safety Report 7769287-1 (Version None)
Quarter: 2011Q3

REPORT INFORMATION
  Report Type: 
  Country: None (occurrence: None)
  Receive Date: 20110922
  Receipt Date: 20110919
  Transmission Date: 20111222
  Serious: Yes (Hospitalization)
  Sender: FDA-Public Use
  Company Number: US-GLAXOSMITHKLINE-A0945144A

PATIENT
  Age: 35 Year
  Sex: Female

DRUGS (1)
  1. BC ARTHRITIS STRENGTH POWDER [Suspect]
     Indication: ORAL PAIN

REACTIONS (24)
  - THERMAL BURN [None]
  - GASTROOESOPHAGEAL REFLUX DISEASE [None]
  - FLUID RETENTION [None]
  - HYPERHIDROSIS [None]
  - MALNUTRITION [None]
  - PYREXIA [None]
  - LOSS OF CONSCIOUSNESS [None]
  - WHITE BLOOD CELL COUNT DECREASED [None]
  - ORAL PAIN [None]
  - HYPERTENSION [None]
  - ANXIETY [None]
  - MOUTH INJURY [None]
  - ENDODONTIC PROCEDURE [None]
  - RED BLOOD CELL COUNT DECREASED [None]
  - HERPES VIRUS INFECTION [None]
  - FUNGAL INFECTION [None]
  - MALAISE [None]
  - GINGIVAL ERYTHEMA [None]
  - MYOCARDIAL INFARCTION [None]
  - SWELLING [None]
  - BLOOD ALBUMIN DECREASED [None]
  - FEELING ABNORMAL [None]
  - PAIN [None]
  - CHEST DISCOMFORT [None]
